FAERS Safety Report 11004942 (Version 1)
Quarter: 2015Q2

REPORT INFORMATION
  Report Type: Report from Study
  Country: IN (occurrence: IN)
  Receive Date: 20150409
  Receipt Date: 20150409
  Transmission Date: 20150821
  Serious: Yes (Death, Hospitalization)
  Sender: FDA-Public Use
  Company Number: PHHY2015IN041955

PATIENT
  Age: 87 Year
  Sex: Male

DRUGS (4)
  1. ELKAR [Concomitant]
     Indication: NEUROPATHY PERIPHERAL
     Dosage: UNK UNK, QD
     Route: 048
     Dates: start: 20121212
  2. ASPIRIN. [Concomitant]
     Active Substance: ASPIRIN
     Indication: RHEUMATOID ARTHRITIS
     Dosage: UNK UNK, QD
     Route: 048
     Dates: start: 20121212
  3. METFORMIN HYDROCHLORIDE EXTENDED RELEASE [Concomitant]
     Active Substance: METFORMIN HYDROCHLORIDE
     Indication: PRODUCT USED FOR UNKNOWN INDICATION
     Dosage: 50 OT, QD
     Route: 048
  4. EXELON [Suspect]
     Active Substance: RIVASTIGMINE TARTRATE
     Indication: DEMENTIA ALZHEIMER^S TYPE
     Dosage: 1.5 MG, QD
     Route: 048
     Dates: start: 20121212

REACTIONS (2)
  - Fall [Unknown]
  - Cerebral haemorrhage [Fatal]
